FAERS Safety Report 17174386 (Version 1)
Quarter: 2019Q4

REPORT INFORMATION
  Report Type: Spontaneous
  Country: US (occurrence: US)
  Receive Date: 20191126
  Receipt Date: 20191126
  Transmission Date: 20200122
  Serious: No
  Sender: FDA-Public Use
  Company Number: None

PATIENT
  Age: 63 Year
  Sex: Female

DRUGS (1)
  1. DEFEROXAMINE MES INJ 2GM [Suspect]
     Active Substance: DEFEROXAMINE MESYLATE
     Route: 042
     Dates: start: 201906

REACTIONS (3)
  - Syringe issue [None]
  - Product dispensing error [None]
  - Needle issue [None]

NARRATIVE: CASE EVENT DATE: 20191126
